FAERS Safety Report 11446280 (Version 1)
Quarter: 2015Q3

REPORT INFORMATION
  Report Type: Spontaneous
  Country: US (occurrence: US)
  Receive Date: 20150831
  Receipt Date: 20150831
  Transmission Date: 20151125
  Serious: No
  Sender: FDA-Public Use
  Company Number: US-ELI_LILLY_AND_COMPANY-US200810006199

PATIENT
  Sex: Female

DRUGS (2)
  1. CYMBALTA [Suspect]
     Active Substance: DULOXETINE HYDROCHLORIDE
     Dosage: 60 MG, UNK
  2. CYMBALTA [Suspect]
     Active Substance: DULOXETINE HYDROCHLORIDE
     Indication: MIGRAINE
     Dosage: 30 MG, UNK

REACTIONS (8)
  - Amnesia [Unknown]
  - Screaming [Unknown]
  - Dyspnoea [Unknown]
  - Abnormal behaviour [Unknown]
  - Migraine [Unknown]
  - Anxiety [Unknown]
  - Crying [Unknown]
  - Adverse reaction [Unknown]

NARRATIVE: CASE EVENT DATE: 2008
